FAERS Safety Report 7011094-1 (Version None)
Quarter: 2010Q3

REPORT INFORMATION
  Report Type: 
  Country: None (occurrence: None)
  Receive Date: 20100922
  Receipt Date: 20100922
  Transmission Date: 20110219
  Serious: Yes (Other)
  Sender: FDA-Public Use
  Company Number: None

PATIENT
  Age: 57 Year
  Sex: Male
  Weight: 81.1939 kg

DRUGS (1)
  1. SINGULAIR [Suspect]
     Indication: RHINITIS
     Dosage: 1 TABLET DAILY PO
     Route: 048
     Dates: start: 20100715, end: 20100815

REACTIONS (4)
  - AGGRESSION [None]
  - AGITATION [None]
  - DEPRESSION [None]
  - MOOD ALTERED [None]
